FAERS Safety Report 7783379-2 (Version None)
Quarter: 2011Q3

REPORT INFORMATION
  Report Type: 
  Country: None (occurrence: None)
  Receive Date: 20110927
  Receipt Date: 20110927
  Transmission Date: 20111222
  Serious: Yes (Life-Threatening, Hospitalization)
  Sender: FDA-Public Use
  Company Number: None

PATIENT
  Sex: Male

DRUGS (1)
  1. AFINITOR [Suspect]
     Indication: GASTROINTESTINAL CARCINOMA
     Dosage: 10MG DAILY BY MOUTH
     Route: 048
     Dates: start: 20110510, end: 20110910

REACTIONS (14)
  - BLOOD GLUCOSE INCREASED [None]
  - URINE ABNORMALITY [None]
  - DECREASED APPETITE [None]
  - FATIGUE [None]
  - ASTHENIA [None]
  - BLOOD COUNT ABNORMAL [None]
  - DYSPNOEA [None]
  - BLOOD PHOSPHORUS DECREASED [None]
  - RENAL FAILURE [None]
  - DIALYSIS [None]
  - PYREXIA [None]
  - DIARRHOEA [None]
  - EPISTAXIS [None]
  - BACK PAIN [None]
